FAERS Safety Report 8229569-6 (Version None)
Quarter: 2012Q1

REPORT INFORMATION
  Report Type: 
  Country: None (occurrence: None)
  Receive Date: 20120322
  Receipt Date: 20120319
  Transmission Date: 20120608
  Serious: Yes (Death, Hospitalization)
  Sender: FDA-Public Use
  Company Number: DE-ABBOTT-06P-062-0344109-00

PATIENT
  Age: 73 Year
  Sex: Male

DRUGS (3)
  1. HUMIRA [Suspect]
     Indication: RHEUMATOID ARTHRITIS
     Route: 058
     Dates: start: 20040901, end: 20060417
  2. PREDNISOLONE [Concomitant]
     Indication: RHEUMATOID ARTHRITIS
     Route: 048
     Dates: start: 20000501
  3. ARTHROTEC [Concomitant]
     Indication: RHEUMATOID ARTHRITIS
     Dates: start: 20000901

REACTIONS (4)
  - LIPOSARCOMA RECURRENT [None]
  - LIPOSARCOMA METASTATIC [None]
  - APNOEA [None]
  - PULMONARY CONGESTION [None]
